FAERS Safety Report 7762099-4 (Version None)
Quarter: 2011Q3

REPORT INFORMATION
  Report Type: 
  Country: None (occurrence: None)
  Receive Date: 20110920
  Receipt Date: 20110920
  Transmission Date: 20111222
  Serious: Yes (Hospitalization, Congenital Anomaly)
  Sender: FDA-Public Use
  Company Number: None

PATIENT
  Age: 32 Year
  Sex: Female
  Weight: 90.718 kg

DRUGS (1)
  1. PRENATAL ONE [Suspect]
     Indication: PREGNANCY
     Dosage: 1 TABLET
     Route: 048
     Dates: start: 20110401, end: 20110507

REACTIONS (3)
  - MATERNAL EXPOSURE DURING PREGNANCY [None]
  - VAGINAL HAEMORRHAGE [None]
  - ABORTION SPONTANEOUS [None]
